FAERS Safety Report 21981551 (Version 1)
Quarter: 2023Q1

REPORT INFORMATION
  Report Type: Spontaneous
  Country: US (occurrence: None)
  Receive Date: 20230212
  Receipt Date: 20230212
  Transmission Date: 20230417
  Serious: Yes (Hospitalization, Other)
  Sender: FDA-Public Use
  Company Number: US-Emmaus Medical, Inc.-EMM202302-000027

PATIENT
  Age: 59 Year
  Sex: Female

DRUGS (3)
  1. ENDARI [Suspect]
     Active Substance: GLUTAMINE
     Indication: Sickle cell disease
     Dosage: 5 GM
     Route: 048
     Dates: start: 201901
  2. ENDARI [Suspect]
     Active Substance: GLUTAMINE
     Dosage: 20 GM DAILY
     Route: 048
  3. ENDARI [Suspect]
     Active Substance: GLUTAMINE
     Dosage: 10 GM (2 PACKETS OF 5 GM EACH BY MOUTH)
     Route: 048

REACTIONS (8)
  - Myocardial infarction [Recovered/Resolved]
  - Hospitalisation [Unknown]
  - Palpitations [Recovered/Resolved]
  - Dyspnoea [Recovered/Resolved]
  - Fatigue [Recovered/Resolved]
  - Dyspepsia [Recovered/Resolved]
  - Off label use [Unknown]
  - Product dose omission issue [Unknown]

NARRATIVE: CASE EVENT DATE: 20210501
